FAERS Safety Report 18343875 (Version 1)
Quarter: 2020Q4

REPORT INFORMATION
  Report Type: Spontaneous
  Country: US (occurrence: US)
  Receive Date: 20201005
  Receipt Date: 20201005
  Transmission Date: 20210114
  Serious: No
  Sender: FDA-Public Use
  Company Number: US-009507513-2010USA000563

PATIENT
  Sex: Female

DRUGS (1)
  1. PRINIVIL [Suspect]
     Active Substance: LISINOPRIL
     Indication: PROTEIN URINE PRESENT
     Dosage: 2.5 MILLIGRAM, QD
     Route: 048

REACTIONS (1)
  - Product use in unapproved indication [Unknown]
